FAERS Safety Report 6585326-8 (Version None)
Quarter: 2010Q1

REPORT INFORMATION
  Report Type: 
  Country: None (occurrence: None)
  Receive Date: 20100201
  Receipt Date: 20090514
  Transmission Date: 20100710
  Serious: Yes (Other)
  Sender: FDA-Public Use
  Company Number: 8046419

PATIENT
  Sex: Male
  Weight: 113.6 kg

DRUGS (6)
  1. KEPPRA [Suspect]
     Indication: CONVULSION
     Dosage: 1000 MG BID ORAL : 500 MG BID
     Route: 048
     Dates: start: 20090319
  2. LOTREL [Concomitant]
  3. LOPRESSOR [Concomitant]
  4. PLAVIX [Concomitant]
  5. LORAZEPAM [Concomitant]
  6. LAMICTAL CD [Concomitant]

REACTIONS (2)
  - IRRITABILITY [None]
  - SUICIDAL IDEATION [None]
